FAERS Safety Report 4710222-8 (Version None)
Quarter: 2005Q3

REPORT INFORMATION
  Report Type: 
  Country: None (occurrence: None)
  Receive Date: 20050709
  Receipt Date: 20050704
  Transmission Date: 20060218
  Serious: Yes (Hospitalization)
  Sender: FDA-Public Use
  Company Number: NO-MERCK-0507NOR00004

PATIENT
  Age: 44 Year
  Sex: Female

DRUGS (7)
  1. VIOXX [Suspect]
     Indication: RHEUMATOID ARTHRITIS
     Route: 065
     Dates: start: 20000101, end: 20041001
  2. LEVOTHYROXINE SODIUM [Concomitant]
     Indication: HYPOTHYROIDISM
     Route: 065
     Dates: start: 19950101
  3. LEFLUNOMIDE [Concomitant]
     Indication: RHEUMATOID ARTHRITIS
     Route: 065
     Dates: start: 20000901
  4. ZOPICLONE [Concomitant]
     Indication: SLEEP DISORDER
     Route: 065
  5. ACETAMINOPHEN AND CODEINE PHOSPHATE [Concomitant]
     Indication: RHEUMATOID ARTHRITIS
     Route: 065
  6. PREDNISOLONE [Concomitant]
     Indication: RHEUMATOID ARTHRITIS
     Route: 065
  7. ESTRADIOL AND NORETHINDRONE ACETATE [Concomitant]
     Route: 065

REACTIONS (3)
  - CEREBROVASCULAR ACCIDENT [None]
  - HEADACHE [None]
  - HYPERTENSION [None]
